FAERS Safety Report 7225406-7 (Version None)
Quarter: 2011Q1

REPORT INFORMATION
  Report Type: 
  Country: None (occurrence: None)
  Receive Date: 20110113
  Receipt Date: 20101230
  Transmission Date: 20110831
  Serious: Yes (Hospitalization)
  Sender: FDA-Public Use
  Company Number: RU-ELI_LILLY_AND_COMPANY-RU201006000558

PATIENT
  Sex: Male

DRUGS (10)
  1. GEMCITABINE HCL [Suspect]
     Indication: PANCREATIC CARCINOMA
     Dosage: 1890 MG, UNK
     Dates: start: 20100313, end: 20100527
  2. ASPIRIN [Concomitant]
     Indication: PROPHYLAXIS
  3. PACLITAXEL [Suspect]
     Indication: PANCREATIC CARCINOMA
     Dosage: 237 MG, UNK
     Dates: start: 20100313, end: 20100527
  4. PANCRELIPASE [Concomitant]
     Indication: PROPHYLAXIS
  5. OMEPRAZOLE [Concomitant]
     Indication: SEPTIC SHOCK
  6. HEPTRAL [Concomitant]
     Indication: PROPHYLAXIS
  7. FLUCONAZOLE [Concomitant]
     Indication: SEPTIC SHOCK
  8. MAGNESIUM HYDROXIDE [Concomitant]
     Indication: PROPHYLAXIS
  9. ATENOLOL [Concomitant]
     Indication: PROPHYLAXIS
  10. DICLOFENAC SODIUM [Concomitant]
     Indication: SEPTIC SHOCK

REACTIONS (2)
  - SEPTIC SHOCK [None]
  - MUCOSAL INFLAMMATION [None]
